FAERS Safety Report 7679421-X (Version None)
Quarter: 2011Q3

REPORT INFORMATION
  Report Type: 
  Country: None (occurrence: None)
  Receive Date: 20110805
  Receipt Date: 20110726
  Transmission Date: 20111222
  Serious: Yes (Hospitalization, Other)
  Sender: FDA-Public Use
  Company Number: 2011SP000225

PATIENT
  Age: 19 Year
  Sex: Female
  Weight: 86.1834 kg

DRUGS (1)
  1. NUVARING [Suspect]
     Indication: CONTRACEPTION
     Dates: start: 20081101, end: 20090101

REACTIONS (7)
  - PULMONARY EMBOLISM [None]
  - ANAEMIA [None]
  - COAGULOPATHY [None]
  - HYPOAESTHESIA [None]
  - MENORRHAGIA [None]
  - PARAESTHESIA [None]
  - ANTIPHOSPHOLIPID ANTIBODIES POSITIVE [None]
